FAERS Safety Report 10248809 (Version 1)
Quarter: 2014Q2

REPORT INFORMATION
  Report Type: Spontaneous
  Country: IT (occurrence: None)
  Receive Date: 20140618
  Receipt Date: 20140618
  Transmission Date: 20141212
  Serious: Yes (Hospitalization)
  Sender: FDA-Public Use
  Company Number: B0999740A

PATIENT
  Age: 65 Year
  Sex: Female

DRUGS (7)
  1. PAROXETIN HYDROCHLORIDE [Suspect]
     Indication: DEPRESSION
  2. AMITRIPTYLINE [Suspect]
     Indication: DEPRESSION
  3. IMIPRAMINE [Suspect]
     Indication: DEPRESSION
  4. TRAZODONE [Suspect]
     Indication: DEPRESSION
  5. PERPHENAZINE [Concomitant]
  6. GABAPENTIN [Concomitant]
  7. DELORAZEPAM [Concomitant]

REACTIONS (18)
  - Cardiomyopathy [None]
  - Syncope [None]
  - Dizziness [None]
  - Asthenia [None]
  - Nausea [None]
  - Wound [None]
  - Ejection fraction decreased [None]
  - Dyspnoea [None]
  - Hypotension [None]
  - Electrocardiogram ST segment elevation [None]
  - Dyskinesia [None]
  - Hypokinesia [None]
  - Mitral valve incompetence [None]
  - Sinus bradycardia [None]
  - Electrocardiogram QT prolonged [None]
  - Troponin increased [None]
  - Arteriospasm coronary [None]
  - Myocardial oedema [None]
